FAERS Safety Report 9851220 (Version 2)
Quarter: 2014Q1

REPORT INFORMATION
  Report Type: Spontaneous
  Country: US (occurrence: US)
  Receive Date: 20140128
  Receipt Date: 20140214
  Transmission Date: 20141002
  Serious: Yes (Other)
  Sender: FDA-Public Use
  Company Number: US-GILEAD-2014-0093114

PATIENT
  Sex: Male

DRUGS (2)
  1. LETAIRIS [Suspect]
     Indication: PULMONARY HYPERTENSION
     Dosage: 5 MG, QD
     Route: 065
     Dates: start: 201308
  2. LETAIRIS [Suspect]
     Indication: RENAL FAILURE CHRONIC

REACTIONS (6)
  - Pneumonia [Unknown]
  - Syncope [Unknown]
  - Respiratory tract infection [Unknown]
  - Dyspnoea [Unknown]
  - Fatigue [Unknown]
  - Oedema [Unknown]
